FAERS Safety Report 7977081-1 (Version None)
Quarter: 2011Q4

REPORT INFORMATION
  Report Type: 
  Country: None (occurrence: None)
  Receive Date: 20111213
  Receipt Date: 20111114
  Transmission Date: 20120403
  Serious: Yes (Hospitalization)
  Sender: FDA-Public Use
  Company Number: US-AMGEN-USASP2011059794

PATIENT
  Age: 69 Year
  Sex: Female

DRUGS (3)
  1. RITUXAN [Concomitant]
     Dosage: UNK
  2. METHOTREXATE [Concomitant]
     Dosage: 1 MG, UNK
     Dates: start: 19910101
  3. ENBREL [Suspect]
     Indication: RHEUMATOID ARTHRITIS
     Dosage: 50 MG, QWK
     Dates: start: 20101223, end: 20110312

REACTIONS (1)
  - PNEUMONIA [None]
